FAERS Safety Report 6043639-2 (Version None)
Quarter: 2009Q1

REPORT INFORMATION
  Report Type: 
  Country: None (occurrence: None)
  Receive Date: 20090115
  Receipt Date: 20090115
  Transmission Date: 20090719
  Serious: Yes (Life-Threatening, Other)
  Sender: FDA-Public Use
  Company Number: None

PATIENT
  Sex: Male
  Weight: 46.7205 kg

DRUGS (2)
  1. AZITHROMYCIN [Suspect]
     Indication: SOFT TISSUE INFECTION
     Dosage: 500MG FIRST DAY PO 250MG DAILY PO  2009-5
     Route: 048
     Dates: start: 20080109, end: 20080113
  2. . [Concomitant]

REACTIONS (1)
  - AGGRESSION [None]
